FAERS Safety Report 4502265-4 (Version None)
Quarter: 2004Q4

REPORT INFORMATION
  Report Type: 
  Country: None (occurrence: None)
  Receive Date: 20041109
  Receipt Date: 20041027
  Transmission Date: 20050328
  Serious: Yes (Hospitalization)
  Sender: FDA-Public Use
  Company Number: JP_041105013

PATIENT
  Age: 23 Year
  Sex: Female

DRUGS (1)
  1. ZYPREXA [Suspect]
     Indication: SCHIZOPHRENIA

REACTIONS (4)
  - DRUG INEFFECTIVE [None]
  - INCOHERENT [None]
  - PSYCHIATRIC EVALUATION ABNORMAL [None]
  - SEDATION [None]
